FAERS Safety Report 8791533 (Version 1)
Quarter: 2012Q4

REPORT INFORMATION
  Report Type: Spontaneous
  Country: US (occurrence: None)
  Receive Date: 20120914
  Receipt Date: 20120914
  Transmission Date: 20130627
  Serious: Yes (Life-Threatening)
  Sender: FDA-Public Use
  Company Number: None

PATIENT
  Age: 57 Year
  Sex: Female
  Weight: 61 kg

DRUGS (8)
  1. NATALIZUMAB [Suspect]
     Indication: MULTIPLE SCLEROSIS
     Dosage: 57 doses
  2. XANAX [Concomitant]
  3. ASPIRIN [Concomitant]
  4. LISINOPRIL [Concomitant]
  5. METHADONE [Concomitant]
  6. MULTIVITAMIN [Concomitant]
  7. OXYCODONE/ACETAMINOPHEN [Concomitant]
  8. BECLOFEN [Concomitant]

REACTIONS (10)
  - Progressive multifocal leukoencephalopathy [None]
  - JC virus test positive [None]
  - Muscular weakness [None]
  - Condition aggravated [None]
  - Clumsiness [None]
  - Central nervous system lesion [None]
  - Ataxia [None]
  - Drug withdrawal syndrome [None]
  - Clostridium test positive [None]
  - Diarrhoea [None]
